FAERS Safety Report 11318152 (Version 3)
Quarter: 2015Q3

REPORT INFORMATION
  Report Type: Spontaneous
  Country: JP (occurrence: JP)
  Receive Date: 20150728
  Receipt Date: 20150826
  Transmission Date: 20151125
  Serious: Yes (Death, Hospitalization, Other)
  Sender: FDA-Public Use
  Company Number: JP-BAUSCH-BL-2015-017865

PATIENT
  Age: 55 Year
  Sex: Male

DRUGS (5)
  1. FLUOROURACIL. [Suspect]
     Active Substance: FLUOROURACIL
     Indication: NASOPHARYNGEAL CANCER
     Route: 048
  2. DOCETAXEL. [Suspect]
     Active Substance: DOCETAXEL
     Route: 048
  3. CISPLATIN. [Suspect]
     Active Substance: CISPLATIN
     Indication: NASOPHARYNGEAL CANCER
     Route: 065
  4. DOCETAXEL. [Suspect]
     Active Substance: DOCETAXEL
     Indication: NASOPHARYNGEAL CANCER
     Route: 065
  5. CISPLATIN. [Suspect]
     Active Substance: CISPLATIN
     Route: 048

REACTIONS (10)
  - Febrile neutropenia [Fatal]
  - Septic shock [Unknown]
  - Acute respiratory distress syndrome [Fatal]
  - Enterocolitis [Unknown]
  - Candida infection [Unknown]
  - Pneumonia staphylococcal [Fatal]
  - Renal impairment [Unknown]
  - Stomatitis [Unknown]
  - Sepsis [Unknown]
  - Cytomegalovirus infection [Fatal]
